FAERS Safety Report 7249269-9 (Version None)
Quarter: 2011Q1

REPORT INFORMATION
  Report Type: 
  Country: None (occurrence: None)
  Receive Date: 20110128
  Receipt Date: 20101123
  Transmission Date: 20110831
  Serious: Yes (Hospitalization, Other)
  Sender: FDA-Public Use
  Company Number: US-BAYER-201020603NA

PATIENT
  Sex: Female
  Weight: 88.435 kg

DRUGS (7)
  1. YAZ [Suspect]
     Indication: PREMENSTRUAL SYNDROME
     Dosage: UNK
     Dates: start: 20090101, end: 20090701
  2. YAZ [Suspect]
     Indication: CONTRACEPTION
  3. LOESTRIN FE 1/20 [Concomitant]
     Indication: ANAEMIA
     Dosage: UNK
  4. LOESTRIN FE 1/20 [Concomitant]
     Dosage: UNK
  5. LOESTRIN FE 1/20 [Concomitant]
     Dosage: UNK
  6. YAZ [Suspect]
     Indication: MENORRHAGIA
  7. LOESTRIN FE 1/20 [Concomitant]
     Dosage: UNK

REACTIONS (6)
  - DEEP VEIN THROMBOSIS [None]
  - ANXIETY [None]
  - PANIC ATTACK [None]
  - CHEST PAIN [None]
  - PULMONARY EMBOLISM [None]
  - DYSPNOEA [None]
